FAERS Safety Report 14491326 (Version 8)
Quarter: 2018Q4

REPORT INFORMATION
  Report Type: Spontaneous
  Country: BE (occurrence: BE)
  Receive Date: 20180206
  Receipt Date: 20181211
  Transmission Date: 20190204
  Serious: Yes (Hospitalization, Other)
  Sender: FDA-Public Use
  Company Number: PHHY2017BE199908

PATIENT
  Age: 69 Year
  Sex: Male
  Weight: 72.3 kg

DRUGS (22)
  1. FLUOROURACIL. [Suspect]
     Active Substance: FLUOROURACIL
     Indication: COLORECTAL CANCER METASTATIC
     Dosage: 4804.9 MG, Q3W
     Route: 042
     Dates: start: 20170912
  2. LEVOLEUCOVORIN. [Suspect]
     Active Substance: LEVOLEUCOVORIN
     Dosage: 1 OT, Q2W
     Route: 042
     Dates: start: 20171114, end: 20171212
  3. AVASTIN [Suspect]
     Active Substance: BEVACIZUMAB
     Dosage: 1 DF, Q3W
     Route: 042
     Dates: start: 20180430
  4. BEVACIZUMAB. [Suspect]
     Active Substance: BEVACIZUMAB
     Indication: COLORECTAL CANCER METASTATIC
     Dosage: 1 OT, Q3W
     Route: 042
     Dates: start: 20170912
  5. STILNOCT [Concomitant]
     Active Substance: ZOLPIDEM TARTRATE
     Indication: PROPHYLAXIS
     Dosage: UNK
     Route: 065
  6. AUGMENTIN [Concomitant]
     Active Substance: AMOXICILLIN\CLAVULANATE POTASSIUM
     Indication: PROPHYLAXIS
  7. OXALIPLATIN. [Suspect]
     Active Substance: OXALIPLATIN
     Indication: COLORECTAL CANCER METASTATIC
     Dosage: 73 MG, QW
     Route: 065
     Dates: start: 20170912, end: 20171114
  8. LEVOLEUCOVORIN. [Suspect]
     Active Substance: LEVOLEUCOVORIN
     Dosage: 361 MG, UNK
     Route: 042
     Dates: start: 20170912, end: 20171114
  9. DUROGESIC [Concomitant]
     Active Substance: FENTANYL
     Indication: PRODUCT USED FOR UNKNOWN INDICATION
     Dosage: UNK
     Route: 065
  10. LEVOLEUCOVORIN. [Suspect]
     Active Substance: LEVOLEUCOVORIN
     Dosage: 1 OT, Q2W
     Route: 042
     Dates: start: 20171212
  11. FLUOROURACIL. [Suspect]
     Active Substance: FLUOROURACIL
     Dosage: 4804.9 MG, Q3W
     Route: 042
     Dates: start: 20171114
  12. OXYNORM [Concomitant]
     Active Substance: OXYCODONE HYDROCHLORIDE
     Indication: PRODUCT USED FOR UNKNOWN INDICATION
     Dosage: UNK
     Route: 065
  13. LEVOLEUCOVORIN. [Suspect]
     Active Substance: LEVOLEUCOVORIN
     Indication: COLORECTAL CANCER METASTATIC
     Dosage: 4804.9 MG, Q2W
     Route: 042
     Dates: start: 20170912, end: 20171114
  14. AVASTIN [Suspect]
     Active Substance: BEVACIZUMAB
     Indication: COLORECTAL CANCER METASTATIC
     Dosage: 1 DF, Q3W
     Route: 042
     Dates: start: 20170912
  15. BEVACIZUMAB. [Suspect]
     Active Substance: BEVACIZUMAB
     Dosage: 1 OT, Q3W
     Route: 042
     Dates: start: 20180430
  16. AUGMENTIN [Concomitant]
     Active Substance: AMOXICILLIN\CLAVULANATE POTASSIUM
     Indication: HAEMATURIA
     Dosage: UNK
     Route: 065
  17. OXALIPLATIN. [Suspect]
     Active Substance: OXALIPLATIN
     Dosage: 1 OT, Q2W
     Route: 042
     Dates: start: 20171114, end: 20171212
  18. OXALIPLATIN. [Suspect]
     Active Substance: OXALIPLATIN
     Dosage: 73 MG, Q3W
     Route: 042
     Dates: start: 20171212
  19. FLUOROURACIL. [Suspect]
     Active Substance: FLUOROURACIL
     Dosage: 4804.9 MG, Q3W
     Route: 042
     Dates: start: 20171212
  20. DAFALGAN [Concomitant]
     Active Substance: ACETAMINOPHEN
     Indication: PRODUCT USED FOR UNKNOWN INDICATION
     Dosage: UNK
     Route: 065
  21. LAXIDO [Concomitant]
     Active Substance: POLYETHYLENE GLYCOL 3350\POTASSIUM CHLORIDE\SODIUM BICARBONATE\SODIUM CHLORIDE
     Indication: PROPHYLAXIS
     Dosage: UNK
     Route: 065
  22. ZOMETA [Concomitant]
     Active Substance: ZOLEDRONIC ACID
     Indication: PRODUCT USED FOR UNKNOWN INDICATION
     Dosage: UNK
     Route: 065

REACTIONS (17)
  - Haematoma infection [Recovered/Resolved]
  - Haematuria [Recovering/Resolving]
  - Chronic kidney disease [Recovered/Resolved]
  - Anaemia [Recovering/Resolving]
  - Seizure [Recovered/Resolved]
  - Dyspnoea [Recovering/Resolving]
  - Vomiting [Recovered/Resolved]
  - Constipation [Recovered/Resolved]
  - Weight decreased [Recovering/Resolving]
  - Neuropathy peripheral [Recovered/Resolved]
  - Pain [Recovered/Resolved]
  - Nausea [Recovered/Resolved]
  - Transferrin saturation decreased [Recovered/Resolved]
  - Malaise [Recovering/Resolving]
  - Fatigue [Recovering/Resolving]
  - Decreased appetite [Recovered/Resolved]
  - Perineal pain [Not Recovered/Not Resolved]

NARRATIVE: CASE EVENT DATE: 20170926
